FAERS Safety Report 15516232 (Version 1)
Quarter: 2018Q4

REPORT INFORMATION
  Report Type: Spontaneous
  Country: US (occurrence: US)
  Receive Date: 20181017
  Receipt Date: 20181017
  Transmission Date: 20190205
  Serious: No
  Sender: FDA-Public Use
  Company Number: US-ACCORD-071379

PATIENT
  Sex: Female

DRUGS (1)
  1. SPIRONOLACTONE ACCORD [Suspect]
     Active Substance: SPIRONOLACTONE
     Indication: PRODUCT USED FOR UNKNOWN INDICATION
     Dosage: STRENGTH:25 MG

REACTIONS (4)
  - Product odour abnormal [Unknown]
  - Product substitution issue [Unknown]
  - Feeling abnormal [Unknown]
  - Abdominal discomfort [Unknown]
